FAERS Safety Report 20981022 (Version 1)
Quarter: 2022Q2

REPORT INFORMATION
  Report Type: Spontaneous
  Country: US (occurrence: US)
  Receive Date: 20220620
  Receipt Date: 20220620
  Transmission Date: 20220721
  Serious: No
  Sender: FDA-Public Use
  Company Number: US-Accord-226515

PATIENT
  Sex: Female
  Weight: 58.06 kg

DRUGS (1)
  1. CAPECITABINE [Suspect]
     Active Substance: CAPECITABINE
     Indication: Breast cancer
     Dosage: DAILY
     Route: 048
     Dates: start: 20210428, end: 20210430

REACTIONS (5)
  - Feeling abnormal [Unknown]
  - Illness [Unknown]
  - Pain [Unknown]
  - Asthenia [Unknown]
  - Condition aggravated [Unknown]
